FAERS Safety Report 25957377 (Version 2)
Quarter: 2025Q4

REPORT INFORMATION
  Report Type: Report from Study
  Country: US (occurrence: US)
  Receive Date: 20251024
  Receipt Date: 20251230
  Transmission Date: 20260117
  Serious: Yes (Other)
  Sender: PFIZER
  Company Number: US-PFIZER INC-PV202500123735

PATIENT
  Age: 67 Year
  Sex: Female

DRUGS (2)
  1. ZAVZPRET [Suspect]
     Active Substance: ZAVEGEPANT HYDROCHLORIDE
     Dosage: ONE SPRAY IN 1 NOSTRIL AS A SINGLE DOSE AS NEEDED. MAXIMUM: ONE SPRAY PER 24 HOURS
  2. SERTRALINE [Concomitant]
     Active Substance: SERTRALINE HYDROCHLORIDE
     Dosage: UNK

REACTIONS (1)
  - Wrist fracture [Unknown]
